FAERS Safety Report 6172913-4 (Version None)
Quarter: 2009Q2

REPORT INFORMATION
  Report Type: 
  Country: None (occurrence: None)
  Receive Date: 20090430
  Receipt Date: 20090421
  Transmission Date: 20091009
  Serious: No
  Sender: FDA-Public Use
  Company Number: PHHY2009BE15260

PATIENT
  Age: 43 Year
  Sex: Female

DRUGS (5)
  1. TASIGNA [Suspect]
     Indication: CHRONIC MYELOID LEUKAEMIA
     Dosage: 400 MG, BID
  2. PROGRAFT [Concomitant]
  3. BACTRIM [Concomitant]
  4. MAGNESIUM SULFATE [Concomitant]
  5. OMEPRAZOLE [Concomitant]

REACTIONS (1)
  - MYALGIA [None]
